FAERS Safety Report 8837057 (Version 1)
Quarter: 2012Q4

REPORT INFORMATION
  Report Type: Spontaneous
  Country: US (occurrence: None)
  Receive Date: 20121011
  Receipt Date: 20121011
  Transmission Date: 20130627
  Serious: Yes (Life-Threatening)
  Sender: FDA-Public Use
  Company Number: None

PATIENT
  Sex: Female

DRUGS (1)
  1. OPANA [Suspect]
     Indication: SUBSTANCE ABUSE
     Dosage: IV
     Route: 042

REACTIONS (4)
  - Thrombotic thrombocytopenic purpura [None]
  - Microangiopathic haemolytic anaemia [None]
  - Renal failure acute [None]
  - Intentional drug misuse [None]
